FAERS Safety Report 23345778 (Version 3)
Quarter: 2024Q1

REPORT INFORMATION
  Report Type: Report from Study
  Country: US (occurrence: US)
  Receive Date: 20231228
  Receipt Date: 20240129
  Transmission Date: 20240409
  Serious: Yes (Hospitalization)
  Sender: FDA-Public Use
  Company Number: US-Eisai-EC-2023-153693

PATIENT
  Age: 70 Year
  Sex: Male
  Weight: 84.2 kg

DRUGS (17)
  1. LENVIMA [Suspect]
     Active Substance: LENVATINIB
     Indication: Renal cancer
     Dosage: STOPPED FOR 2 DAYS
     Route: 048
     Dates: start: 20231109, end: 202401
  2. LENVIMA [Suspect]
     Active Substance: LENVATINIB
     Route: 048
     Dates: start: 202401, end: 202401
  3. LENVIMA [Suspect]
     Active Substance: LENVATINIB
     Route: 048
     Dates: start: 202401
  4. KEYTRUDA [Suspect]
     Active Substance: PEMBROLIZUMAB
     Indication: Product used for unknown indication
     Dosage: UNKNOWN DOSE AND FREQUENCY
     Route: 042
     Dates: start: 202311, end: 20231210
  5. VITAMINS [Concomitant]
     Active Substance: VITAMINS
  6. HYDRALAZINE [Concomitant]
     Active Substance: HYDRALAZINE HYDROCHLORIDE
  7. ELIQUIS [Concomitant]
     Active Substance: APIXABAN
  8. ALLOPURINOL [Concomitant]
     Active Substance: ALLOPURINOL
  9. PANTOPRAZOLE [Concomitant]
     Active Substance: PANTOPRAZOLE
  10. METOLAZONE [Concomitant]
     Active Substance: METOLAZONE
  11. PROCHLORPERAZINE [Concomitant]
     Active Substance: PROCHLORPERAZINE
  12. DOXAZOSIN [Concomitant]
     Active Substance: DOXAZOSIN MESYLATE
  13. IRON [Concomitant]
     Active Substance: IRON
     Route: 042
  14. BACLOFEN [Concomitant]
     Active Substance: BACLOFEN
  15. LEVOTHYROXINE SODIUM [Concomitant]
     Active Substance: LEVOTHYROXINE SODIUM
  16. MONTELUKAST SODIUM [Concomitant]
     Active Substance: MONTELUKAST SODIUM
  17. CLOMITRAZOLE-BETAMETHAZONE [Concomitant]

REACTIONS (6)
  - Blood pressure increased [Not Recovered/Not Resolved]
  - Pneumonia [Unknown]
  - Pneumonitis [Unknown]
  - Fatigue [Unknown]
  - Pain in jaw [Unknown]
  - Mental impairment [Unknown]

NARRATIVE: CASE EVENT DATE: 20231101
